FAERS Safety Report 4492140-6 (Version None)
Quarter: 2004Q4

REPORT INFORMATION
  Report Type: 
  Country: None (occurrence: None)
  Receive Date: 20041101
  Receipt Date: 20041019
  Transmission Date: 20050328
  Serious: Yes (Life-Threatening, Hospitalization, Other)
  Sender: FDA-Public Use
  Company Number: 2004-0007606

PATIENT
  Age: 42 Year
  Sex: Male
  Weight: 125.5 kg

DRUGS (6)
  1. EMTRIVA [Suspect]
     Indication: HIV INFECTION
     Dosage: 200 MG, 1 IN 1 D, ORAL
     Route: 048
  2. VIREAD [Suspect]
     Indication: HIV INFECTION
     Dosage: 300 MG, 1 IN 1 D, ORAL
     Route: 048
     Dates: start: 20040701
  3. TRUVADA [Suspect]
     Indication: HIV INFECTION
     Dosage: 1 DOSAGE FORMS, 1 IN 1 D, ORAL
     Route: 048
     Dates: start: 20040901, end: 20041003
  4. DIFLUCAN [Concomitant]
  5. ANADROL [Concomitant]
  6. KALETRA [Concomitant]

REACTIONS (3)
  - HAEMODIALYSIS [None]
  - MEDICATION ERROR [None]
  - RENAL FAILURE ACUTE [None]
